FAERS Safety Report 6403890-6 (Version None)
Quarter: 2009Q4

REPORT INFORMATION
  Report Type: 
  Country: None (occurrence: None)
  Receive Date: 20091016
  Receipt Date: 20091008
  Transmission Date: 20100525
  Serious: Yes (Hospitalization)
  Sender: FDA-Public Use
  Company Number: US-BAYER-200935751NA

PATIENT
  Age: 19 Year
  Sex: Female
  Weight: 86 kg

DRUGS (1)
  1. MIRENA [Suspect]
     Indication: DRUG USE FOR UNKNOWN INDICATION
     Dosage: CONTINUOUS
     Route: 015
     Dates: start: 20090313

REACTIONS (3)
  - ABDOMINAL PAIN LOWER [None]
  - PELVIC INFLAMMATORY DISEASE [None]
  - VAGINAL HAEMORRHAGE [None]
